APPROVED DRUG PRODUCT: IRBESARTAN
Active Ingredient: IRBESARTAN
Strength: 75MG
Dosage Form/Route: TABLET;ORAL
Application: A203685 | Product #001
Applicant: AJANTA PHARMA LTD
Approved: Dec 10, 2015 | RLD: No | RS: No | Type: DISCN